FAERS Safety Report 8606568-3 (Version None)
Quarter: 2012Q3

REPORT INFORMATION
  Report Type: 
  Country: None (occurrence: None)
  Receive Date: 20120703
  Receipt Date: 20120703
  Transmission Date: 20120928
  Serious: Yes (Other)
  Sender: FDA-Public Use
  Company Number: None

PATIENT
  Age: 30 Year
  Sex: Female
  Weight: 74.8435 kg

DRUGS (2)
  1. WELLBUTRIN [Suspect]
     Indication: DEPRESSION
     Dosage: 150MG ONCE A DAY PO
     Route: 048
     Dates: start: 20110901, end: 20110907
  2. WELLBUTRIN [Suspect]
     Indication: SMOKING CESSATION THERAPY
     Dosage: 150MG ONCE A DAY PO
     Route: 048
     Dates: start: 20110901, end: 20110907

REACTIONS (5)
  - LETHARGY [None]
  - AMNESIA [None]
  - HYPOTENSION [None]
  - AGGRESSION [None]
  - MENTAL STATUS CHANGES [None]
